FAERS Safety Report 20655314 (Version 1)
Quarter: 2022Q1

REPORT INFORMATION
  Report Type: Spontaneous
  Country: US (occurrence: None)
  Receive Date: 20220330
  Receipt Date: 20220330
  Transmission Date: 20220424
  Serious: Yes (Other)
  Sender: FDA-Public Use
  Company Number: None

PATIENT
  Sex: Male

DRUGS (1)
  1. TESTOPEL [Suspect]
     Active Substance: TESTOSTERONE
     Indication: Hypogonadism male
     Dosage: TO BE ADMINISTERED IN PRESCRIBERS OFFICE 12 PELLETS UNDER THE SKIN (SUBCUTANEOUS  INJECTION) EVERY 4
     Route: 058
     Dates: start: 20180508

REACTIONS (1)
  - Throat cancer [None]
